FAERS Safety Report 5133741-1 (Version None)
Quarter: 2006Q4

REPORT INFORMATION
  Report Type: 
  Country: None (occurrence: None)
  Receive Date: 20061024
  Receipt Date: 20060911
  Transmission Date: 20070319
  Serious: Yes (Death, Hospitalization)
  Sender: FDA-Public Use
  Company Number: US-AVENTIS-200620386GDDC

PATIENT
  Age: 67 Year
  Sex: Male

DRUGS (8)
  1. TAXOTERE [Suspect]
     Indication: NON-SMALL CELL LUNG CANCER
     Route: 042
     Dates: start: 20060814, end: 20060814
  2. CAPECITABINE [Suspect]
     Indication: NON-SMALL CELL LUNG CANCER
  3. LOVENOX [Concomitant]
  4. DILTIAZEM HCL [Concomitant]
     Dosage: DOSE: UNK
  5. ZETIA [Concomitant]
     Dosage: DOSE: UNK
  6. VICODIN [Concomitant]
     Dosage: DOSE: UNK
  7. WARFARIN SODIUM [Concomitant]
     Dosage: DOSE: UNK
  8. DEXAMETHASONE TAB [Concomitant]
     Dosage: DOSE: UNK

REACTIONS (6)
  - ATRIAL FIBRILLATION [None]
  - BALANCE DISORDER [None]
  - CEREBRAL INFARCTION [None]
  - CONFUSIONAL STATE [None]
  - DYSPNOEA [None]
  - FALL [None]
